FAERS Safety Report 11522016 (Version 1)
Quarter: 2015Q3

REPORT INFORMATION
  Report Type: Report from Study
  Country: AT (occurrence: AT)
  Receive Date: 20150918
  Receipt Date: 20150918
  Transmission Date: 20151125
  Serious: Yes (Hospitalization)
  Sender: FDA-Public Use
  Company Number: AT-ABBVIE-15P-009-1463663-00

PATIENT
  Sex: Male

DRUGS (1)
  1. DUODOPA [Suspect]
     Active Substance: CARBIDOPA\LEVODOPA
     Indication: PARKINSON^S DISEASE
     Dosage: MD: 7.0 ML D: 1,2 ML CR: 2.8 ML/H
     Route: 050
     Dates: start: 20150615

REACTIONS (2)
  - Incorrect route of drug administration [Not Recovered/Not Resolved]
  - Device dislocation [Unknown]
